FAERS Safety Report 9530240 (Version 1)
Quarter: 2013Q3

REPORT INFORMATION
  Report Type: Spontaneous
  Country: BG (occurrence: BG)
  Receive Date: 20130917
  Receipt Date: 20130917
  Transmission Date: 20140515
  Serious: Yes (Congenital Anomaly, Other)
  Sender: FDA-Public Use
  Company Number: BG-WATSON-2013-16604

PATIENT
  Sex: 0

DRUGS (1)
  1. ISOFLURANE (UNKNOWN) [Suspect]
     Indication: ANAESTHESIA
     Dosage: UNK
     Route: 064

REACTIONS (2)
  - Congenital neurological disorder [Unknown]
  - Foetal exposure during delivery [Unknown]
